FAERS Safety Report 22269456 (Version 1)
Quarter: 2023Q2

REPORT INFORMATION
  Report Type: Spontaneous
  Country: US (occurrence: US)
  Receive Date: 20230501
  Receipt Date: 20230501
  Transmission Date: 20230722
  Serious: Yes (Hospitalization, Other)
  Sender: FDA-Public Use
  Company Number: US-SA-SAC20230427000124

PATIENT
  Age: 69 Year
  Sex: Male
  Weight: 84 kg

DRUGS (2)
  1. AMBIEN [Suspect]
     Active Substance: ZOLPIDEM TARTRATE
     Dosage: UNK
     Route: 065
  2. MIFEPRISTONE [Suspect]
     Active Substance: MIFEPRISTONE
     Dosage: UNK
     Route: 065

REACTIONS (11)
  - Hallucination [Unknown]
  - Hospitalisation [Unknown]
  - Alkalosis [Unknown]
  - Amnesia [Unknown]
  - Hypotension [Unknown]
  - Blood potassium abnormal [Unknown]
  - Blood glucose decreased [Unknown]
  - Fall [Unknown]
  - Lethargy [Unknown]
  - Cognitive disorder [Unknown]
  - Nausea [Unknown]

NARRATIVE: CASE EVENT DATE: 20230301
